FAERS Safety Report 20457985 (Version 1)
Quarter: 2022Q1

REPORT INFORMATION
  Report Type: Spontaneous
  Country: US (occurrence: US)
  Receive Date: 20220211
  Receipt Date: 20220211
  Transmission Date: 20220423
  Serious: No
  Sender: FDA-Public Use
  Company Number: US-PERRIGO-21US003188

PATIENT
  Sex: Female
  Weight: 124.26 kg

DRUGS (9)
  1. CETIRIZINE HYDROCHLORIDE [Suspect]
     Active Substance: CETIRIZINE HYDROCHLORIDE
     Indication: Hypersensitivity
     Dosage: 10 TO 20 MG, QD PRN
     Route: 048
     Dates: start: 2011, end: 20210302
  2. CETIRIZINE HYDROCHLORIDE [Suspect]
     Active Substance: CETIRIZINE HYDROCHLORIDE
     Indication: Seasonal allergy
  3. CETIRIZINE HYDROCHLORIDE [Suspect]
     Active Substance: CETIRIZINE HYDROCHLORIDE
     Indication: Allergy to animal
  4. CETIRIZINE HYDROCHLORIDE [Suspect]
     Active Substance: CETIRIZINE HYDROCHLORIDE
     Indication: Mite allergy
  5. CETIRIZINE HYDROCHLORIDE [Suspect]
     Active Substance: CETIRIZINE HYDROCHLORIDE
     Indication: Allergy to arthropod sting
  6. AMOXICILLIN [Concomitant]
     Active Substance: AMOXICILLIN
     Indication: Root canal infection
     Dosage: UNKNOWN, UNKNOWN
     Route: 065
     Dates: start: 202102
  7. ACETAMINOPHEN [Concomitant]
     Active Substance: ACETAMINOPHEN
     Indication: Root canal infection
     Dosage: UNKNOWN, UNKNOWN
     Route: 065
     Dates: start: 202102
  8. IBUPROFEN [Concomitant]
     Active Substance: IBUPROFEN
     Indication: Root canal infection
     Dosage: UNKNOWN, UNKNOWN
     Route: 065
     Dates: start: 202102
  9. ALLERGY MEDICATION [Concomitant]
     Active Substance: DIPHENHYDRAMINE HYDROCHLORIDE
     Indication: Immune tolerance induction
     Dosage: UNKNOWN, UNKNOWN
     Route: 065

REACTIONS (3)
  - Nausea [Not Recovered/Not Resolved]
  - Incorrect dose administered [Recovered/Resolved]
  - Exposure to unspecified agent [Recovered/Resolved]

NARRATIVE: CASE EVENT DATE: 20110101
